FAERS Safety Report 4683786-0 (Version None)
Quarter: 2005Q2

REPORT INFORMATION
  Report Type: 
  Country: None (occurrence: None)
  Receive Date: 20050602
  Receipt Date: 20050218
  Transmission Date: 20051028
  Serious: No
  Sender: FDA-Public Use
  Company Number: 200421158BWH

PATIENT
  Sex: Male
  Weight: 61.2356 kg

DRUGS (7)
  1. LEVITRA [Suspect]
     Indication: ERECTILE DYSFUNCTION
     Dosage: 10 MG, TOTAL DAILY, ORAL
     Route: 048
     Dates: start: 20041225
  2. LEVITRA [Suspect]
     Indication: ERECTILE DYSFUNCTION
     Dosage: 10 MG, TOTAL DAILY, ORAL
     Route: 048
     Dates: start: 20050119
  3. GLUCOPHAGE [Concomitant]
  4. ZETIA [Concomitant]
  5. ZOCOR [Concomitant]
  6. FLONASE [Concomitant]
  7. BLOOD PRESSURE MEDICATION [Concomitant]

REACTIONS (4)
  - CHROMATOPSIA [None]
  - HEADACHE [None]
  - NASAL CONGESTION [None]
  - PAIN [None]
